FAERS Safety Report 9013500 (Version 1)
Quarter: 2013Q1

REPORT INFORMATION
  Report Type: Spontaneous
  Country: US (occurrence: US)
  Receive Date: 20130115
  Receipt Date: 20130115
  Transmission Date: 20140127
  Serious: Yes (Hospitalization)
  Sender: FDA-Public Use
  Company Number: US-BAYER-2013-003945

PATIENT
  Age: 43 Year
  Sex: Female
  Weight: 81.2 kg

DRUGS (12)
  1. YAZ [Suspect]
  2. YASMIN [Suspect]
     Indication: DYSFUNCTIONAL UTERINE BLEEDING
  3. ERYTHROMYCIN [Concomitant]
     Indication: ACNE
     Dosage: UNK UNK, BID
     Route: 061
  4. RETIN-A MICRO [Concomitant]
     Indication: ACNE
     Dosage: UNK UNK, BID
     Route: 061
     Dates: start: 20090415
  5. RETIN-A MICRO [Concomitant]
     Indication: ACNE
     Dosage: UNK; IN THE EVENING DAILY
     Route: 061
     Dates: start: 20090415
  6. TOPROL XL [Concomitant]
     Indication: SUPRAVENTRICULAR TACHYCARDIA
     Dosage: 25 MG, HS
     Route: 048
     Dates: start: 20090415
  7. AMBIEN [Concomitant]
     Indication: SEDATIVE THERAPY
  8. VICODIN [Concomitant]
     Indication: PAIN
  9. TYLENOL [Concomitant]
     Indication: PAIN
  10. ALBUTEROL [Concomitant]
     Indication: ASTHMA
     Dosage: UNK
     Route: 045
     Dates: start: 20090415
  11. ACZONE [Concomitant]
     Indication: ACNE
     Dosage: 5 %, DAILY
     Route: 061
     Dates: start: 20090415
  12. MINOCYCLINE [Concomitant]
     Indication: ACNE
     Dosage: 50 MG, QD
     Route: 048
     Dates: start: 20090415

REACTIONS (2)
  - Pulmonary embolism [None]
  - Deep vein thrombosis [None]
